FAERS Safety Report 24441957 (Version 2)
Quarter: 2024Q4

REPORT INFORMATION
  Report Type: Spontaneous
  Country: DE (occurrence: DE)
  Receive Date: 20241016
  Receipt Date: 20241202
  Transmission Date: 20250114
  Serious: Yes (Hospitalization)
  Sender: BOEHRINGER INGELHEIM
  Company Number: DE-BoehringerIngelheim-2024-BI-057009

PATIENT
  Age: 64 Year
  Sex: Female
  Weight: 47 kg

DRUGS (18)
  1. JARDIANCE [Suspect]
     Active Substance: EMPAGLIFLOZIN
     Indication: Type 2 diabetes mellitus
  2. JARDIANCE [Suspect]
     Active Substance: EMPAGLIFLOZIN
     Indication: Coronary artery disease
  3. OLODATEROL\TIOTROPIUM [Suspect]
     Active Substance: OLODATEROL\TIOTROPIUM
     Indication: Chronic obstructive pulmonary disease
     Dosage: (2-0-0-0) (3.12 MCG /2.74 MCG)
  4. Budenofalk 4mg Z?pfchen [Concomitant]
     Indication: Product used for unknown indication
     Dosage: 1-0-0-0
  5. Cortiment 9 mg [Concomitant]
     Indication: Product used for unknown indication
     Dosage: 1-0-0-0
  6. ASPIRIN [Concomitant]
     Active Substance: ASPIRIN
     Indication: Product used for unknown indication
     Dosage: 1-0-0-0
  7. CLOPIDOGREL 1A PHARMA 75MG [Concomitant]
     Indication: Product used for unknown indication
     Dosage: 1-0-0-0
     Dates: start: 202312
  8. PANTOZOL [Concomitant]
     Active Substance: PANTOPRAZOLE SODIUM
     Indication: Product used for unknown indication
     Dosage: 1-0-0-0
  9. BISOPROLOL 5 1A PHARMA [Concomitant]
     Indication: Product used for unknown indication
     Dosage: 1-0-1-0
  10. RAMILICH 2.5MG TABLETTEN [Concomitant]
     Indication: Product used for unknown indication
     Dosage: 1-0-0-0
  11. EPLERENON 1A PHARMA 25MG [Concomitant]
     Indication: Product used for unknown indication
     Dosage: 1-0-0-0
  12. Rosuvastatin/Ezetimib Elpen 40mg/10mg Filmt. [Concomitant]
     Indication: Product used for unknown indication
     Dosage: 1-0-0-0 (11.58MG/10MG)
  13. Sitagliptin - 1 A Pharma 100 mg Filmtabletten [Concomitant]
     Indication: Product used for unknown indication
     Dosage: 1-0-0-0
  14. TILIDIN 50/4 RETARD 1A PHA [Concomitant]
     Indication: Product used for unknown indication
     Dosage: (51.45 MG/4.4 MG)
  15. NOVALGIN [Concomitant]
     Indication: Product used for unknown indication
     Dosage: 4 TIMES PER DAY IF REQUIRED
  16. SALBUTAMOL AL FERTIGINHALA [Concomitant]
     Indication: Product used for unknown indication
  17. METFORMIN [Concomitant]
     Active Substance: METFORMIN HYDROCHLORIDE
     Indication: Product used for unknown indication
  18. SITAGLIPTIN [Concomitant]
     Active Substance: SITAGLIPTIN
     Indication: Product used for unknown indication

REACTIONS (5)
  - Fall [Unknown]
  - Ketoacidosis [Recovered/Resolved]
  - Impaired healing [Recovering/Resolving]
  - Injury [Unknown]
  - Dyspnoea [Unknown]

NARRATIVE: CASE EVENT DATE: 20240701
